FAERS Safety Report 16230128 (Version 2)
Quarter: 2019Q2

REPORT INFORMATION
  Report Type: Spontaneous
  Country: US (occurrence: US)
  Receive Date: 20190423
  Receipt Date: 20190624
  Transmission Date: 20190711
  Serious: No
  Sender: FDA-Public Use
  Company Number: US-INCYTE CORPORATION-2019IN003742

PATIENT

DRUGS (2)
  1. JAKAFI [Suspect]
     Active Substance: RUXOLITINIB
     Indication: WHITE BLOOD CELL COUNT INCREASED
     Dosage: 15 MILLIGRAM, BID
     Route: 048
     Dates: start: 20190209
  2. JAKAFI [Suspect]
     Active Substance: RUXOLITINIB
     Dosage: 15 MILLIGRAM, BID
     Route: 048
     Dates: start: 20190219

REACTIONS (6)
  - Arthralgia [Unknown]
  - Off label use [Unknown]
  - Paraesthesia oral [Unknown]
  - Mouth ulceration [Unknown]
  - Joint swelling [Unknown]
  - Oedema peripheral [Unknown]
